FAERS Safety Report 6112053-3 (Version None)
Quarter: 2009Q1

REPORT INFORMATION
  Report Type: 
  Country: None (occurrence: None)
  Receive Date: 20090311
  Receipt Date: 20090227
  Transmission Date: 20090719
  Serious: Yes (Other)
  Sender: FDA-Public Use
  Company Number: GB-PFIZER INC-2009178881

PATIENT

DRUGS (1)
  1. CHAMPIX [Suspect]
     Route: 048

REACTIONS (2)
  - AFFECTIVE DISORDER [None]
  - SUICIDAL IDEATION [None]
